FAERS Safety Report 9190692 (Version 1)
Quarter: 2013Q1

REPORT INFORMATION
  Report Type: Spontaneous
  Country: US (occurrence: US)
  Receive Date: 20130326
  Receipt Date: 20130326
  Transmission Date: 20140127
  Serious: No
  Sender: FDA-Public Use
  Company Number: US-009507513-1303USA012597

PATIENT
  Sex: Female

DRUGS (8)
  1. ZOCOR [Suspect]
     Dosage: 1 TABLET BY MOUTH NIGHTLY
     Route: 048
     Dates: start: 20121107
  2. KLOR-CON [Concomitant]
     Dosage: 1 DF, BID
     Route: 048
     Dates: start: 20121012
  3. PRILOSEC [Concomitant]
     Dosage: 1 DF, QD
     Route: 048
     Dates: start: 20130109
  4. ADVIL [Concomitant]
     Dosage: 1 DF, TID
     Route: 048
     Dates: start: 20120621
  5. MOTRIN [Concomitant]
     Dosage: 1 DF, TID
     Route: 048
     Dates: start: 20120621
  6. HYDRODIURIL [Concomitant]
     Dosage: 1 DF, QD
     Route: 048
     Dates: start: 20121211
  7. ALLEGRA [Concomitant]
     Dosage: 1 DF, QD
     Route: 048
     Dates: start: 20121127
  8. CYMBALTA [Concomitant]
     Dosage: 1 DF, QD
     Route: 048
     Dates: start: 20120503

REACTIONS (5)
  - Major depression [Unknown]
  - Joint injury [Unknown]
  - Arthralgia [Unknown]
  - Arthropathy [Unknown]
  - Constipation [Unknown]
